FAERS Safety Report 8178400-6 (Version None)
Quarter: 2012Q1

REPORT INFORMATION
  Report Type: 
  Country: None (occurrence: None)
  Receive Date: 20120301
  Receipt Date: 20120220
  Transmission Date: 20120608
  Serious: Yes (Other)
  Sender: FDA-Public Use
  Company Number: US-ELI_LILLY_AND_COMPANY-US201112004685

PATIENT
  Sex: Female

DRUGS (6)
  1. LOSARTAN POTASSIUM [Concomitant]
  2. METOPROLOL SUCCINATE [Concomitant]
  3. FUROSEMIDE [Concomitant]
  4. FORTEO [Suspect]
     Indication: OSTEOPOROSIS
     Dosage: 20 UG, QD
     Route: 058
     Dates: start: 20110730, end: 20120126
  5. WARFARIN SODIUM [Concomitant]
  6. GABAPENTIN [Concomitant]

REACTIONS (1)
  - CALCIPHYLAXIS [None]
